FAERS Safety Report 6588765-4 (Version None)
Quarter: 2010Q1

REPORT INFORMATION
  Report Type: 
  Country: None (occurrence: None)
  Receive Date: 20100202
  Receipt Date: 20090908
  Transmission Date: 20100710
  Serious: No
  Sender: FDA-Public Use
  Company Number: 2009-00587

PATIENT
  Age: 72 Year
  Sex: Male
  Weight: 81.6475 kg

DRUGS (12)
  1. ZICAM COLD REMEDY GEL SWABS [Suspect]
     Dosage: QID, OFF AND ON; ABOUT 5 YRS AGO-SPRING09
  2. ZICAM COLD REMEDY GEL SWABS [Suspect]
     Dosage: QID, OFF AND ON; ABOUT 5 YRS AGO-SPRING09
  3. LUVOX [Concomitant]
  4. LITHIUM [Concomitant]
  5. NEXIUM [Concomitant]
  6. HYTRIN [Concomitant]
  7. NORVASC [Concomitant]
  8. ALLEGRA [Concomitant]
  9. HYDROCHLOROT [Concomitant]
  10. ATENOLOL [Concomitant]
  11. NASONEX [Concomitant]
  12. ZICAM COLD REMEDY NASAL GEL [Suspect]

REACTIONS (1)
  - ANOSMIA [None]
